FAERS Safety Report 5221560-7 (Version None)
Quarter: 2007Q1

REPORT INFORMATION
  Report Type: 
  Country: None (occurrence: None)
  Receive Date: 20070127
  Receipt Date: 20070117
  Transmission Date: 20070707
  Serious: Yes (Life-Threatening)
  Sender: FDA-Public Use
  Company Number: FR-ABBOTT-07P-056-0356100-00

PATIENT
  Age: 77 Year
  Sex: Female

DRUGS (1)
  1. VERCYTE [Suspect]
     Indication: MYELOPROLIFERATIVE DISORDER
     Route: 048
     Dates: start: 20040815, end: 20060915

REACTIONS (1)
  - ACUTE LEUKAEMIA [None]
